FAERS Safety Report 11745438 (Version 1)
Quarter: 2015Q4

REPORT INFORMATION
  Report Type: Spontaneous
  Country: US (occurrence: US)
  Receive Date: 20151117
  Receipt Date: 20151117
  Transmission Date: 20160304
  Serious: No
  Sender: FDA-Public Use
  Company Number: PHHY2015US130843

PATIENT
  Sex: Male

DRUGS (2)
  1. VOTRIENT [Suspect]
     Active Substance: PAZOPANIB HYDROCHLORIDE
     Indication: LUNG DISORDER
     Dosage: 800 MG, 1D
     Route: 065
     Dates: start: 20150104, end: 20150313
  2. VOTRIENT [Suspect]
     Active Substance: PAZOPANIB HYDROCHLORIDE
     Indication: RENAL CANCER
     Dosage: 400 MG, QD
     Route: 065
     Dates: start: 20150103, end: 20150304

REACTIONS (2)
  - Diarrhoea [Recovered/Resolved]
  - Fatigue [Recovered/Resolved]
